FAERS Safety Report 9098769 (Version 1)
Quarter: 2013Q1

REPORT INFORMATION
  Report Type: Spontaneous
  Country: US (occurrence: US)
  Receive Date: 20130213
  Receipt Date: 20130213
  Transmission Date: 20140127
  Serious: Yes (Hospitalization, Other)
  Sender: FDA-Public Use
  Company Number: US-ACTELION-A-US2003-02234

PATIENT
  Age: 68 Year
  Sex: Female
  Weight: 84.81 kg

DRUGS (22)
  1. TRACLEER [Suspect]
     Indication: PULMONARY ARTERIAL HYPERTENSION
     Dosage: UNK
     Route: 048
     Dates: start: 19990101
  2. ESZOPICLONE [Interacting]
     Dates: start: 20050620, end: 20050624
  3. SYNTHROID [Concomitant]
     Dosage: 150 MCG, QD
  4. ALTACE [Concomitant]
     Dosage: 10 MG, BID
     Route: 048
  5. EFFEXOR [Concomitant]
     Dosage: 75 MG, BID
     Route: 048
  6. DEMADEX [Concomitant]
  7. SALAGEN [Concomitant]
     Dosage: 5 MG, QD
     Route: 048
  8. ESTRADIOL [Concomitant]
     Dosage: 1 TABLET, QD
  9. AMBIEN [Concomitant]
     Dosage: 10 MG, UNK
  10. SEREVENT [Concomitant]
     Dosage: 2 PUFF, BID
  11. AZATHIOPRINE [Concomitant]
     Dosage: 2 MG, BID
  12. COUMADIN [Concomitant]
     Dosage: .75 MG, QD
  13. NORVASC [Concomitant]
     Dosage: 10 MG, BID
     Route: 048
  14. ROBINUL [Concomitant]
     Dosage: 1 TABLET, QD
     Route: 048
  15. FLONASE [Concomitant]
     Dosage: 1 SPRAY, BID
  16. VERAPAMIL [Concomitant]
     Dosage: 240 MG, BID
     Route: 048
  17. CLARITIN [Concomitant]
  18. AMITRIPTYLINE [Concomitant]
     Dosage: 10 MG, UNK
  19. SPIRONOLACTONE [Concomitant]
     Dosage: 100 MG, OD
  20. DARVOCET-N [Concomitant]
     Dosage: 1 UNK, PRN
  21. CELLCEPT [Concomitant]
     Dosage: 2500 MG, QD
  22. ATENOLOL [Concomitant]
     Dosage: 25 MG, BID

REACTIONS (16)
  - Liver function test abnormal [Recovering/Resolving]
  - Alanine aminotransferase increased [Recovering/Resolving]
  - Aspartate aminotransferase increased [Recovering/Resolving]
  - Blood alkaline phosphatase increased [Recovering/Resolving]
  - Lung infiltration [Not Recovered/Not Resolved]
  - Drug interaction [Recovering/Resolving]
  - Pulmonary hypertension [Unknown]
  - Palpitations [Unknown]
  - Dyspnoea [Unknown]
  - Dyspnoea exertional [Unknown]
  - Dizziness [Unknown]
  - Viral infection [Unknown]
  - Nausea [Unknown]
  - Pyrexia [Unknown]
  - Diarrhoea [Unknown]
  - Abdominal pain upper [Unknown]
